FAERS Safety Report 21078135 (Version 3)
Quarter: 2022Q3

REPORT INFORMATION
  Report Type: Spontaneous
  Country: CA (occurrence: CA)
  Receive Date: 20220713
  Receipt Date: 20220729
  Transmission Date: 20221027
  Serious: Yes (Other)
  Sender: FDA-Public Use
  Company Number: CA-PFIZER INC-202200949043

PATIENT
  Age: 22 Year
  Sex: Male

DRUGS (2)
  1. XELJANZ [Suspect]
     Active Substance: TOFACITINIB CITRATE
     Indication: Colitis ulcerative
     Dosage: 10 MG, 2X/DAY,8 WEEK - INDUCTION , THEN 5MG, 2X/DAY
     Route: 048
     Dates: start: 20220615, end: 202207
  2. PREDNISONE [Concomitant]
     Active Substance: PREDNISONE
     Dosage: 1 DF, DOSAGE NOT AVAILABLE
     Route: 065

REACTIONS (3)
  - Haematochezia [Recovering/Resolving]
  - Condition aggravated [Recovering/Resolving]
  - Drug ineffective [Not Recovered/Not Resolved]
